FAERS Safety Report 23443854 (Version 1)
Quarter: 2024Q1

REPORT INFORMATION
  Report Type: Spontaneous
  Country: US (occurrence: None)
  Receive Date: 20240124
  Receipt Date: 20240124
  Transmission Date: 20240410
  Serious: Yes (Disabling)
  Sender: FDA-Public Use
  Company Number: None

PATIENT
  Age: 54 Year
  Sex: Female
  Weight: 68.4 kg

DRUGS (1)
  1. METOCLOPRAMIDE [Suspect]
     Active Substance: METOCLOPRAMIDE
     Indication: Intestinal obstruction
     Dates: start: 20231226

REACTIONS (3)
  - Mania [None]
  - Tachyphrenia [None]
  - Insomnia [None]

NARRATIVE: CASE EVENT DATE: 20231226
